FAERS Safety Report 15807220 (Version 1)
Quarter: 2019Q1

REPORT INFORMATION
  Report Type: Spontaneous
  Country: IN (occurrence: IN)
  Receive Date: 20190110
  Receipt Date: 20190110
  Transmission Date: 20190417
  Serious: Yes (Death, Other)
  Sender: FDA-Public Use
  Company Number: IN-CORDEN PHARMA LATINA S.P.A.-IN-2019COR000001

PATIENT

DRUGS (5)
  1. RADIOTHERAPY [Suspect]
     Active Substance: RADIATION THERAPY
     Indication: NEUROBLASTOMA
     Dosage: 70 GY IN 35 FRACTIONS FOR 7 WEEKS
  2. ETOPOSIDE. [Suspect]
     Active Substance: ETOPOSIDE
     Indication: NEUROBLASTOMA
     Dosage: 100 MG, 1-3 (EVERY 21 DAYS FOR 2 CYCLES)
  3. CISPLATIN. [Suspect]
     Active Substance: CISPLATIN
     Indication: NEUROBLASTOMA
     Dosage: 40 MG, DAYS 1-3 (EVERY 21 DAYS FOR 2 CYCLES)
     Route: 065
  4. CISPLATIN. [Suspect]
     Active Substance: CISPLATIN
     Dosage: 40 MG, EVERY 21 DAYS FOR 4 CYCLES
  5. ETOPOSIDE. [Suspect]
     Active Substance: ETOPOSIDE
     Dosage: 100 MG, EVERY 21 DAYS FOR 4 CYCLES

REACTIONS (3)
  - Subcutaneous emphysema [Unknown]
  - Respiratory failure [Fatal]
  - Pneumomediastinum [Unknown]
